FAERS Safety Report 16429548 (Version 1)
Quarter: 2019Q2

REPORT INFORMATION
  Report Type: Spontaneous
  Country: US (occurrence: US)
  Receive Date: 20190614
  Receipt Date: 20190614
  Transmission Date: 20190711
  Serious: No
  Sender: FDA-Public Use
  Company Number: US-009507513-1906USA004588

PATIENT
  Age: 21 Year
  Sex: Female
  Weight: 109.3 kg

DRUGS (1)
  1. NEXPLANON [Suspect]
     Active Substance: ETONOGESTREL
     Dosage: 68 MILLIGRAM (1 IMPLANT)
     Route: 059
     Dates: start: 20171020

REACTIONS (3)
  - Product quality issue [Unknown]
  - Poor quality device used [Unknown]
  - Device breakage [Not Recovered/Not Resolved]

NARRATIVE: CASE EVENT DATE: 20171020
